FAERS Safety Report 18707128 (Version 2)
Quarter: 2021Q1

REPORT INFORMATION
  Report Type: Report from Study
  Country: IT (occurrence: IT)
  Receive Date: 20210106
  Receipt Date: 20210113
  Transmission Date: 20210419
  Serious: Yes (Other)
  Sender: FDA-Public Use
  Company Number: IT-GILEAD-2021-0511409

PATIENT
  Age: 58 Year
  Sex: Female

DRUGS (1)
  1. BICTEGRAVIR W/EMTRICITABINE/TENOFOVIR ALAFENAMIDE [Suspect]
     Active Substance: BICTEGRAVIR\EMTRICITABINE\TENOFOVIR ALAFENAMIDE
     Indication: HIV INFECTION
     Dosage: 1 DOSAGE FORM, TOTAL
     Route: 048
     Dates: start: 20201220, end: 20201220

REACTIONS (5)
  - Melaena [Not Recovered/Not Resolved]
  - Hypersensitivity [Not Recovered/Not Resolved]
  - Abdominal pain [Not Recovered/Not Resolved]
  - Rectal haemorrhage [Not Recovered/Not Resolved]
  - Diarrhoea [Not Recovered/Not Resolved]

NARRATIVE: CASE EVENT DATE: 20201224
